FAERS Safety Report 14456032 (Version 3)
Quarter: 2018Q1

REPORT INFORMATION
  Report Type: Report from Study
  Country: None (occurrence: DE)
  Receive Date: 20180130
  Receipt Date: 20180305
  Transmission Date: 20180509
  Serious: Yes (Death, Hospitalization, Other)
  Sender: FDA-Public Use
  Company Number: DE-ABBVIE-18K-062-2236441-00

PATIENT
  Age: 73 Year
  Sex: Male

DRUGS (4)
  1. DUODOPA [Suspect]
     Active Substance: CARBIDOPA\LEVODOPA
     Indication: PARKINSON^S DISEASE
     Dosage: MD 8 ML; CRD 4.5 ML/H; CRN 1 ML/H; ED 1.5 ML
     Route: 050
     Dates: start: 20170227
  2. ZOPICLON AL [Concomitant]
     Indication: PRODUCT USED FOR UNKNOWN INDICATION
  3. ASPIRIN. [Concomitant]
     Active Substance: ASPIRIN
     Indication: PRODUCT USED FOR UNKNOWN INDICATION
  4. ATORVASTATIN [Concomitant]
     Active Substance: ATORVASTATIN
     Indication: PRODUCT USED FOR UNKNOWN INDICATION

REACTIONS (9)
  - Syncope [Not Recovered/Not Resolved]
  - Seizure [Unknown]
  - Incorrect dose administered [Unknown]
  - Unintentional medical device removal [Unknown]
  - Death [Fatal]
  - Dehydration [Not Recovered/Not Resolved]
  - Hypovolaemia [Not Recovered/Not Resolved]
  - General physical health deterioration [Unknown]
  - Akinesia [Unknown]

NARRATIVE: CASE EVENT DATE: 2018
